FAERS Safety Report 7425137-4 (Version None)
Quarter: 2011Q2

REPORT INFORMATION
  Report Type: 
  Country: None (occurrence: None)
  Receive Date: 20110420
  Receipt Date: 20110411
  Transmission Date: 20111010
  Serious: Yes (Hospitalization, Other)
  Sender: FDA-Public Use
  Company Number: US-ELI_LILLY_AND_COMPANY-US201104003714

PATIENT
  Sex: Male

DRUGS (3)
  1. HUMULIN 70/30 [Suspect]
     Indication: DIABETES MELLITUS
     Dosage: UNK, BID
     Route: 065
     Dates: start: 19960101
  2. INSULIN [Concomitant]
     Indication: DIABETES MELLITUS
     Dosage: UNK, UNKNOWN
  3. ANTIBIOTICS [Concomitant]

REACTIONS (12)
  - LOCALISED INFECTION [None]
  - INCORRECT DOSE ADMINISTERED [None]
  - DYSSTASIA [None]
  - MALAISE [None]
  - RENAL FAILURE [None]
  - SKIN ULCER [None]
  - WOUND TREATMENT [None]
  - TOE AMPUTATION [None]
  - HYPOTENSION [None]
  - BLOOD GLUCOSE DECREASED [None]
  - MENTAL STATUS CHANGES [None]
  - SPEECH DISORDER [None]
